FAERS Safety Report 22149877 (Version 1)
Quarter: 2023Q1

REPORT INFORMATION
  Report Type: Spontaneous
  Country: US (occurrence: US)
  Receive Date: 20230329
  Receipt Date: 20230329
  Transmission Date: 20230418
  Serious: No
  Sender: FDA-Public Use
  Company Number: US-APOTEX-2023AP005107

PATIENT
  Sex: Female

DRUGS (4)
  1. LITHIUM [Suspect]
     Active Substance: LITHIUM
     Indication: Bipolar disorder
     Dosage: UNK
     Route: 065
  2. LITHIUM [Suspect]
     Active Substance: LITHIUM
     Dosage: 900 MILLIGRAM, QD
     Route: 065
  3. LITHIUM [Suspect]
     Active Substance: LITHIUM
     Dosage: 450 MILLIGRAM, QD
     Route: 065
  4. LITHIUM [Suspect]
     Active Substance: LITHIUM
     Dosage: 750 MILLIGRAM, QD
     Route: 065

REACTIONS (2)
  - Exposure during pregnancy [Unknown]
  - Nausea [Unknown]
